FAERS Safety Report 14535236 (Version 2)
Quarter: 2019Q1

REPORT INFORMATION
  Report Type: Report from Study
  Country: CA (occurrence: CA)
  Receive Date: 20180215
  Receipt Date: 20190327
  Transmission Date: 20190417
  Serious: Yes (Hospitalization)
  Sender: FDA-Public Use
  Company Number: CA-JNJFOC-20180217623

PATIENT
  Age: 69 Year
  Sex: Female

DRUGS (2)
  1. STELARA [Suspect]
     Active Substance: USTEKINUMAB
     Indication: ANKYLOSING SPONDYLITIS
     Dosage: STRENGTH = 45 MG
     Route: 058
     Dates: start: 20161101
  2. STELARA [Suspect]
     Active Substance: USTEKINUMAB
     Indication: PSORIATIC ARTHROPATHY
     Dosage: STRENGTH = 45 MG
     Route: 058
     Dates: start: 20161101

REACTIONS (5)
  - Device breakage [Recovering/Resolving]
  - Cervical spinal stenosis [Recovered/Resolved]
  - Myelopathy [Recovered/Resolved]
  - Complication associated with device [Recovering/Resolving]
  - Procedural pain [Recovering/Resolving]

NARRATIVE: CASE EVENT DATE: 20171101
